FAERS Safety Report 6523865-6 (Version None)
Quarter: 2009Q4

REPORT INFORMATION
  Report Type: 
  Country: None (occurrence: None)
  Receive Date: 20091231
  Receipt Date: 20091218
  Transmission Date: 20100525
  Serious: Yes (Hospitalization)
  Sender: FDA-Public Use
  Company Number: JRFBEL2000000155

PATIENT
  Age: 41 Year
  Sex: Male

DRUGS (2)
  1. RISPERIDONE [Suspect]
     Indication: SCHIZOPHRENIA
     Route: 048
  2. BENZODIAZEPINE [Concomitant]
     Indication: SCHIZOPHRENIA

REACTIONS (10)
  - ATRIAL FLUTTER [None]
  - DRUG TOXICITY [None]
  - ELECTROCARDIOGRAM QT PROLONGED [None]
  - EXTRAPYRAMIDAL DISORDER [None]
  - HYPOTENSION [None]
  - MIOSIS [None]
  - SINUS BRADYCARDIA [None]
  - STUPOR [None]
  - SUICIDE ATTEMPT [None]
  - SUPRAVENTRICULAR TACHYCARDIA [None]
